FAERS Safety Report 8629499 (Version 2)
Quarter: 2014Q1

REPORT INFORMATION
  Report Type: Spontaneous
  Country: US (occurrence: US)
  Receive Date: 20120622
  Receipt Date: 20140115
  Transmission Date: 20141002
  Serious: Yes (Hospitalization)
  Sender: FDA-Public Use
  Company Number: US-ASTRAZENECA-2012SE35692

PATIENT
  Age: 56 Year
  Sex: Male
  Weight: 90.7 kg

DRUGS (9)
  1. NEXIUM [Suspect]
     Indication: GASTROINTESTINAL DISORDER
     Route: 048
     Dates: start: 20070918, end: 200812
  2. NEXIUM [Suspect]
     Indication: ABDOMINAL DISCOMFORT
     Route: 048
     Dates: start: 20070918, end: 200812
  3. TUMS [Concomitant]
     Dosage: DAILY
  4. PROGRAF [Concomitant]
  5. MYFORTIC [Concomitant]
  6. METOPROLOL [Concomitant]
  7. SIMVASTATIN [Concomitant]
  8. PREDNISONE [Concomitant]
  9. MULTIVITAMINS [Concomitant]

REACTIONS (9)
  - Anaemia [Unknown]
  - Foot fracture [Unknown]
  - Bacteraemia [Unknown]
  - Renal disorder [Unknown]
  - Osteoporosis [Unknown]
  - Multiple fractures [Unknown]
  - Upper limb fracture [Unknown]
  - Tibia fracture [Unknown]
  - Inflammation [Unknown]
